FAERS Safety Report 5563707-9 (Version None)
Quarter: 2007Q4

REPORT INFORMATION
  Report Type: 
  Country: None (occurrence: None)
  Receive Date: 20071217
  Receipt Date: 20071212
  Transmission Date: 20080405
  Serious: Yes (Death, Hospitalization, Other)
  Sender: FDA-Public Use
  Company Number: US-LLY01-US200708002319

PATIENT
  Age: 79 Year
  Sex: Male
  Weight: 68.027 kg

DRUGS (3)
  1. GEMZAR [Suspect]
     Indication: SMALL INTESTINE CARCINOMA
     Dosage: 1000 MG/M2, UNK
     Dates: start: 20070731, end: 20070806
  2. VANCOMYCIN [Concomitant]
     Dosage: UNK, UNK
     Dates: end: 20070101
  3. ZOSYN [Concomitant]
     Dosage: UNK, UNK
     Dates: end: 20070101

REACTIONS (9)
  - AZOTAEMIA [None]
  - BRAIN NATRIURETIC PEPTIDE ABNORMAL [None]
  - CHRONIC OBSTRUCTIVE PULMONARY DISEASE [None]
  - COR PULMONALE [None]
  - DIVERTICULUM [None]
  - LEUKOCYTOSIS [None]
  - PNEUMONIA STAPHYLOCOCCAL [None]
  - RESPIRATORY ARREST [None]
  - SMALL INTESTINAL OBSTRUCTION [None]
